FAERS Safety Report 8923034 (Version 2)
Quarter: 2012Q4

REPORT INFORMATION
  Report Type: Spontaneous
  Country: US (occurrence: None)
  Receive Date: 20121115
  Receipt Date: 20121205
  Transmission Date: 20130627
  Serious: Yes (Death)
  Sender: FDA-Public Use
  Company Number: 2012-7655

PATIENT
  Age: 72 Year
  Sex: Male

DRUGS (1)
  1. SOMATULINE DEPOT [Suspect]
     Indication: ACROMEGALY
     Dosage: 90 mg  (90 mg, 1 in 28 D), Subcutaneous
     Route: 058
     Dates: start: 201108

REACTIONS (1)
  - Therapy cessation [None]
